FAERS Safety Report 6517622-4 (Version None)
Quarter: 2009Q4

REPORT INFORMATION
  Report Type: 
  Country: None (occurrence: None)
  Receive Date: 20091224
  Receipt Date: 20091214
  Transmission Date: 20100525
  Serious: Yes (Hospitalization, Other)
  Sender: FDA-Public Use
  Company Number: PHEH2009US17860

PATIENT
  Age: 48 Year
  Sex: Female

DRUGS (1)
  1. RECLAST [Suspect]
     Indication: OSTEOPOROSIS
     Dosage: 5MG
     Route: 042

REACTIONS (2)
  - HYPOCALCAEMIA [None]
  - HYPOPARATHYROIDISM [None]
